FAERS Safety Report 7204935-6 (Version None)
Quarter: 2010Q4

REPORT INFORMATION
  Report Type: 
  Country: None (occurrence: None)
  Receive Date: 20101230
  Receipt Date: 20101227
  Transmission Date: 20110411
  Serious: Yes (Death, Other)
  Sender: FDA-Public Use
  Company Number: PHHY2010CN88075

PATIENT
  Sex: Male
  Weight: 48 kg

DRUGS (20)
  1. LESCOL XL [Suspect]
     Indication: LIPIDS ABNORMAL
     Dosage: 80 MG, QN
     Route: 048
     Dates: start: 20100717, end: 20101223
  2. CORDARONE [Suspect]
     Indication: ARRHYTHMIA
     Dosage: 200 MG, QD
     Route: 048
     Dates: start: 20100711
  3. DIGOXIN [Suspect]
     Indication: CARDIAC DISORDER
     Dosage: 0.125 MG, QOD
     Route: 048
     Dates: start: 20100717
  4. HERBESSER [Suspect]
     Indication: HEART RATE DECREASED
     Dosage: 30 MG, BID
     Route: 048
     Dates: start: 20100717, end: 20101223
  5. PLAVIX [Suspect]
     Indication: PLATELET AGGREGATION INHIBITION
     Dosage: 75 MG, QN
     Route: 048
     Dates: start: 20100717
  6. ACERDIL [Concomitant]
     Indication: BLOOD PRESSURE DECREASED
     Dosage: 4MG IN THE MORNING AND 2MG IN THE AFTERNOON
     Route: 048
     Dates: start: 20100717
  7. BISOPROLOL [Concomitant]
     Indication: BLOOD PRESSURE DECREASED
     Dosage: 3.75 MG, QD
     Route: 048
     Dates: start: 20101217
  8. CEDOCARD [Concomitant]
     Dosage: 10 MG, QID
     Route: 048
     Dates: start: 20101224
  9. STARLIX [Concomitant]
     Indication: BLOOD GLUCOSE DECREASED
     Dosage: 120 MG, TID
     Route: 048
     Dates: start: 20100717, end: 20101224
  10. KABOPING [Concomitant]
     Indication: BLOOD GLUCOSE DECREASED
     Dosage: 100 MG
     Route: 048
     Dates: start: 20100717
  11. KABOPING [Concomitant]
     Dosage: 75 MG
     Route: 048
  12. KABOPING [Concomitant]
     Dosage: 50 MG
     Route: 048
     Dates: end: 20101224
  13. PROSCAR [Concomitant]
     Indication: BENIGN PROSTATIC HYPERPLASIA
     Dosage: 5 MG, QD
     Route: 048
  14. TAMSULOSIN HCL [Concomitant]
     Indication: BENIGN PROSTATIC HYPERPLASIA
     Dosage: 0.2 MG, QD
     Route: 048
  15. NEUQUINON [Concomitant]
     Dosage: 20 MG, BID
  16. METHYCOBAL [Concomitant]
     Dosage: 0.5 MG, BID
  17. FOLIC ACID [Concomitant]
     Dosage: 0.4 MG, QD
  18. FERROIDS-MEDTECH [Concomitant]
     Indication: MINERAL SUPPLEMENTATION
     Dosage: 1 DF, QD
  19. ASPIRIN [Concomitant]
     Indication: PLATELET AGGREGATION INHIBITION
     Dosage: 100 MG, QN
  20. HEPARIN [Concomitant]
     Indication: COAGULOPATHY
     Dosage: 5000 U, Q12H
     Route: 042
     Dates: start: 20101224

REACTIONS (16)
  - ALANINE AMINOTRANSFERASE INCREASED [None]
  - ANGINA PECTORIS [None]
  - ASPARTATE AMINOTRANSFERASE INCREASED [None]
  - BLOOD CREATINE PHOSPHOKINASE INCREASED [None]
  - BLOOD CREATINE PHOSPHOKINASE MB INCREASED [None]
  - BLOOD CREATININE INCREASED [None]
  - BLOOD URINE PRESENT [None]
  - CARDIAC ARREST [None]
  - CORONARY ARTERY DISEASE [None]
  - GAIT DISTURBANCE [None]
  - HEPATIC FAILURE [None]
  - MUSCULAR WEAKNESS [None]
  - MYALGIA [None]
  - MYOCARDIAL INFARCTION [None]
  - RENAL FAILURE ACUTE [None]
  - RHABDOMYOLYSIS [None]
